FAERS Safety Report 14710203 (Version 1)
Quarter: 2018Q2

REPORT INFORMATION
  Report Type: Spontaneous
  Country: US (occurrence: US)
  Receive Date: 20180403
  Receipt Date: 20180403
  Transmission Date: 20180711
  Serious: No
  Sender: FDA-Public Use
  Company Number: US-ROCHE-1933690

PATIENT
  Sex: Female
  Weight: 65 kg

DRUGS (6)
  1. FLONASE [Concomitant]
     Active Substance: FLUTICASONE PROPIONATE
  2. ACETAMINOPHEN/HYDROCODONE [Concomitant]
     Active Substance: ACETAMINOPHEN\HYDROCODONE
  3. ERIVEDGE [Suspect]
     Active Substance: VISMODEGIB
     Indication: BASAL CELL CARCINOMA
     Route: 048
     Dates: start: 20170404
  4. FERROUS SULFATE. [Concomitant]
     Active Substance: FERROUS SULFATE
  5. NORVASC [Concomitant]
     Active Substance: AMLODIPINE BESYLATE
  6. CELEXA [Concomitant]
     Active Substance: CITALOPRAM HYDROBROMIDE

REACTIONS (3)
  - Dysgeusia [Unknown]
  - Skin cancer [Unknown]
  - Muscle spasms [Unknown]
